FAERS Safety Report 5280409-7 (Version None)
Quarter: 2007Q1

REPORT INFORMATION
  Report Type: 
  Country: None (occurrence: None)
  Receive Date: 20070326
  Receipt Date: 20070326
  Transmission Date: 20070707
  Serious: Yes (Other)
  Sender: FDA-Public Use
  Company Number: None

PATIENT
  Age: 4 Year
  Sex: Female
  Weight: 17.6903 kg

DRUGS (2)
  1. SINGULAIR [Suspect]
     Indication: ASTHMA
     Dosage: 1 TABLET PER DAY PO
     Route: 048
     Dates: start: 20061001, end: 20070207
  2. SINGULAIR [Suspect]
     Indication: HYPERSENSITIVITY
     Dosage: 1 TABLET PER DAY PO
     Route: 048
     Dates: start: 20061001, end: 20070207

REACTIONS (9)
  - ABNORMAL BEHAVIOUR [None]
  - AGGRESSION [None]
  - ANGER [None]
  - DISTURBANCE IN ATTENTION [None]
  - LEARNING DISORDER [None]
  - PERSONALITY CHANGE [None]
  - PSYCHOMOTOR HYPERACTIVITY [None]
  - SPEECH DISORDER [None]
  - THINKING ABNORMAL [None]
